FAERS Safety Report 17662657 (Version 2)
Quarter: 2020Q2

REPORT INFORMATION
  Report Type: Spontaneous
  Country: US (occurrence: US)
  Receive Date: 20200413
  Receipt Date: 20200616
  Transmission Date: 20200713
  Serious: Yes (Hospitalization, Other)
  Sender: FDA-Public Use
  Company Number: US-BAYER-2020-059945

PATIENT
  Age: 90 Year
  Sex: Male

DRUGS (6)
  1. MIRALAX [Suspect]
     Active Substance: POLYETHYLENE GLYCOL 3350
     Indication: CONSTIPATION
     Dosage: 17 G, BID
     Route: 048
     Dates: start: 20190515
  2. AMLODIPINE BESYLATE. [Concomitant]
     Active Substance: AMLODIPINE BESYLATE
     Dosage: 1 DF, QD
  3. VITAMINS NOS [Concomitant]
     Active Substance: VITAMINS
     Dosage: UNK
  4. RESTASIS [Concomitant]
     Active Substance: CYCLOSPORINE
     Dosage: UNK
  5. PREDNISONE. [Concomitant]
     Active Substance: PREDNISONE
     Dosage: UNK
  6. ASPIRIN (CARDIO) [Suspect]
     Active Substance: ASPIRIN
     Dosage: 81 MG, QD
     Route: 048
     Dates: start: 20080722, end: 20200119

REACTIONS (10)
  - Haemoglobin decreased [Recovering/Resolving]
  - Haemorrhoids [None]
  - Diverticulum intestinal haemorrhagic [None]
  - Product use in unapproved indication [None]
  - Gait disturbance [None]
  - Haematochezia [None]
  - Blood loss anaemia [Recovering/Resolving]
  - Constipation [None]
  - Melaena [None]
  - Off label use [None]

NARRATIVE: CASE EVENT DATE: 20190515
